FAERS Safety Report 13595496 (Version 1)
Quarter: 2017Q2

REPORT INFORMATION
  Report Type: Spontaneous
  Country: US (occurrence: US)
  Receive Date: 20170531
  Receipt Date: 20170531
  Transmission Date: 20170830
  Serious: No
  Sender: FDA-Public Use
  Company Number: US-JNJFOC-20170307918

PATIENT
  Age: 4 Year
  Sex: Male

DRUGS (3)
  1. CHILDRENS MOTRIN [Suspect]
     Active Substance: IBUPROFEN
     Indication: ACCIDENTAL EXPOSURE TO PRODUCT
     Dosage: 15ML-20ML
     Route: 048
     Dates: start: 20170303
  2. CHILDRENS MOTRIN [Suspect]
     Active Substance: IBUPROFEN
     Indication: ACCIDENTAL EXPOSURE TO PRODUCT
     Dosage: 10-15ML ONCE
     Route: 048
     Dates: start: 20170303
  3. CHILDRENS MOTRIN [Suspect]
     Active Substance: IBUPROFEN
     Indication: ACCIDENTAL EXPOSURE TO PRODUCT
     Route: 048

REACTIONS (3)
  - Incorrect dose administered [Unknown]
  - Accidental overdose [Unknown]
  - Accidental exposure to product by child [None]

NARRATIVE: CASE EVENT DATE: 20170303
